FAERS Safety Report 9401062 (Version 1)
Quarter: 2013Q3

REPORT INFORMATION
  Report Type: Spontaneous
  Country: BR (occurrence: BR)
  Receive Date: 20130715
  Receipt Date: 20130715
  Transmission Date: 20140515
  Serious: Yes (Other)
  Sender: FDA-Public Use
  Company Number: BR-ABBOTT-13P-020-1098082-00

PATIENT
  Sex: Male
  Weight: 72 kg

DRUGS (5)
  1. KALETRA 200/50 [Suspect]
     Indication: HIV INFECTION
     Dates: start: 201203, end: 201305
  2. TENOFOVIR + LAMIVUDINE (TDF/3TC) [Suspect]
     Indication: HIV INFECTION
     Dates: start: 201203, end: 201305
  3. TENOFOVIR + LAMIVUDINE (TDF/3TC) [Suspect]
  4. ATAZANAVIR W/RITONAVIR [Suspect]
     Indication: HIV INFECTION
  5. LAMOTRIGINE [Concomitant]
     Indication: DEPRESSION
     Dates: start: 2012

REACTIONS (4)
  - Motor neurone disease [Not Recovered/Not Resolved]
  - Amyotrophic lateral sclerosis [Not Recovered/Not Resolved]
  - Muscle contractions involuntary [Not Recovered/Not Resolved]
  - Neuropathy peripheral [Unknown]
